FAERS Safety Report 9001444 (Version 1)
Quarter: 2013Q1

REPORT INFORMATION
  Report Type: Spontaneous
  Country: US (occurrence: US)
  Receive Date: 20130107
  Receipt Date: 20130107
  Transmission Date: 20140127
  Serious: Yes (Death)
  Sender: FDA-Public Use
  Company Number: US-PFIZER INC-2013004588

PATIENT
  Age: 36 Year
  Sex: Male

DRUGS (6)
  1. MORPHINE SULFATE [Suspect]
     Dosage: UNK
     Route: 048
  2. ALPRAZOLAM [Suspect]
  3. TRAMADOL [Suspect]
  4. RISPERIDONE [Suspect]
  5. QUETIAPINE [Suspect]
  6. HYDROMORPHONE [Suspect]

REACTIONS (1)
  - Death [Fatal]
